APPROVED DRUG PRODUCT: GABAPENTIN
Active Ingredient: GABAPENTIN
Strength: 400MG
Dosage Form/Route: CAPSULE;ORAL
Application: A204989 | Product #003 | TE Code: AB
Applicant: SCIEGEN PHARMACEUTICALS INC
Approved: Feb 18, 2016 | RLD: No | RS: No | Type: RX